FAERS Safety Report 23913600 (Version 2)
Quarter: 2024Q2

REPORT INFORMATION
  Report Type: Spontaneous
  Country: US (occurrence: US)
  Receive Date: 20240529
  Receipt Date: 20240610
  Transmission Date: 20240716
  Serious: No
  Sender: FDA-Public Use
  Company Number: US-E2BLSMVVAL-SPO/USA/24/0007490

PATIENT
  Age: 43 Year
  Sex: Female

DRUGS (1)
  1. ACCUTANE [Suspect]
     Active Substance: ISOTRETINOIN
     Indication: Acne cystic
     Route: 065
     Dates: start: 20240101

REACTIONS (4)
  - Eczema [Not Recovered/Not Resolved]
  - Epistaxis [Unknown]
  - Lip dry [Unknown]
  - Chapped lips [Unknown]

NARRATIVE: CASE EVENT DATE: 20240411
